FAERS Safety Report 6250969-8 (Version None)
Quarter: 2009Q2

REPORT INFORMATION
  Report Type: 
  Country: None (occurrence: None)
  Receive Date: 20090630
  Receipt Date: 20090309
  Transmission Date: 20091009
  Serious: Yes (Hospitalization)
  Sender: FDA-Public Use
  Company Number: US-ABBOTT-09P-163-0561602-00

PATIENT
  Sex: Female

DRUGS (1)
  1. ZEMPLAR [Suspect]
     Indication: HYPERPARATHYROIDISM
     Dates: start: 20080701

REACTIONS (5)
  - BACK PAIN [None]
  - BLOOD GLUCOSE DECREASED [None]
  - BRONCHITIS [None]
  - FALL [None]
  - HEADACHE [None]
